FAERS Safety Report 6342135-2 (Version None)
Quarter: 2009Q3

REPORT INFORMATION
  Report Type: 
  Country: None (occurrence: None)
  Receive Date: 20090903
  Receipt Date: 20090903
  Transmission Date: 20100115
  Serious: Yes (Life-Threatening, Hospitalization)
  Sender: FDA-Public Use
  Company Number: None

PATIENT
  Sex: Female
  Weight: 76.2043 kg

DRUGS (3)
  1. NITROFURANTOIN [Suspect]
     Indication: URINARY TRACT INFECTION
     Dosage: 100 MG TWICE A DAY
     Dates: start: 20090806
  2. NITROFURANTOIN [Suspect]
     Indication: URINARY TRACT INFECTION
     Dosage: 100 MG TWICE A DAY
     Dates: start: 20090807
  3. NITROFURANTOIN [Suspect]
     Indication: URINARY TRACT INFECTION
     Dosage: 100 MG TWICE A DAY
     Dates: start: 20090808

REACTIONS (11)
  - DIZZINESS [None]
  - DYSPNOEA [None]
  - EYE PAIN [None]
  - LIP BLISTER [None]
  - OROPHARYNGEAL BLISTERING [None]
  - PHARYNGEAL DISORDER [None]
  - RESPIRATORY TRACT IRRITATION [None]
  - SWELLING FACE [None]
  - SWOLLEN TONGUE [None]
  - TONGUE BLISTERING [None]
  - VISION BLURRED [None]
